FAERS Safety Report 17021177 (Version 2)
Quarter: 2020Q1

REPORT INFORMATION
  Report Type: Spontaneous
  Country: DE (occurrence: DE)
  Receive Date: 20191112
  Receipt Date: 20200107
  Transmission Date: 20200409
  Serious: Yes (Other)
  Sender: FDA-Public Use
  Company Number: DE-OTSUKA-2019_038125

PATIENT
  Age: 37 Year
  Sex: Male

DRUGS (1)
  1. ABILIFY MAINTENA [Suspect]
     Active Substance: ARIPIPRAZOLE
     Indication: SCHIZOPHRENIA
     Dosage: 300 MG, EVERY FOUR WEEKS
     Route: 065
     Dates: start: 20170127

REACTIONS (3)
  - Thrombosis [Unknown]
  - Prescribed underdose [Unknown]
  - Drug level fluctuating [Recovered/Resolved]

NARRATIVE: CASE EVENT DATE: 20170127
